FAERS Safety Report 6292556-1 (Version None)
Quarter: 2009Q3

REPORT INFORMATION
  Report Type: 
  Country: None (occurrence: None)
  Receive Date: 20090731
  Receipt Date: 20090721
  Transmission Date: 20100115
  Serious: Yes (Hospitalization)
  Sender: FDA-Public Use
  Company Number: ES-PFIZER INC-2008024997

PATIENT
  Age: 33 Year

DRUGS (5)
  1. SUNITINIB MALATE [Suspect]
     Indication: PANCREATIC CARCINOMA
     Dosage: UNK, 1X/DAY
     Route: 048
     Dates: start: 20080226, end: 20080312
  2. LANTUS [Concomitant]
     Dates: start: 20070301
  3. OMEPRAZOLE [Concomitant]
     Dates: start: 20070301
  4. HUMALOG [Concomitant]
     Dates: start: 20070301
  5. URSODIOL [Concomitant]
     Dates: start: 20080225

REACTIONS (3)
  - BILE DUCT OBSTRUCTION [None]
  - CATHETER RELATED INFECTION [None]
  - DIARRHOEA [None]
